FAERS Safety Report 9382303 (Version 1)
Quarter: 2013Q3

REPORT INFORMATION
  Report Type: Spontaneous
  Country: US (occurrence: US)
  Receive Date: 20130703
  Receipt Date: 20130703
  Transmission Date: 20140515
  Serious: Yes (Hospitalization, Other)
  Sender: FDA-Public Use
  Company Number: US-ROXANE LABORATORIES, INC.-2013-RO-01092RO

PATIENT
  Age: 30 Year
  Sex: Male

DRUGS (5)
  1. MIDAZOLAM [Suspect]
     Indication: GENERAL ANAESTHESIA
  2. PROPOFOL [Suspect]
     Indication: GENERAL ANAESTHESIA
  3. ISOFLURANE [Suspect]
     Indication: GENERAL ANAESTHESIA
  4. NALOXONE [Suspect]
     Indication: DRUG DETOXIFICATION
  5. NALTREXONE [Suspect]
     Indication: DRUG DETOXIFICATION

REACTIONS (4)
  - Mental status changes [Recovered/Resolved]
  - Respiratory distress [Unknown]
  - Pulmonary oedema [Unknown]
  - Pneumomediastinum [Unknown]
